FAERS Safety Report 6276277-7 (Version None)
Quarter: 2009Q3

REPORT INFORMATION
  Report Type: 
  Country: None (occurrence: None)
  Receive Date: 20090720
  Receipt Date: 20090720
  Transmission Date: 20100115
  Serious: Yes (Death)
  Sender: FDA-Public Use
  Company Number: None

PATIENT
  Age: 53 Year
  Sex: Male

DRUGS (1)
  1. ACETADOTE [Suspect]

REACTIONS (6)
  - CARDIAC ARREST [None]
  - DYSPNOEA [None]
  - RASH GENERALISED [None]
  - RESPIRATORY ARREST [None]
  - SWELLING FACE [None]
  - TROPONIN INCREASED [None]
